FAERS Safety Report 4651663-7 (Version None)
Quarter: 2005Q2

REPORT INFORMATION
  Report Type: 
  Country: None (occurrence: None)
  Receive Date: 20050404
  Receipt Date: 20041102
  Transmission Date: 20051028
  Serious: No
  Sender: FDA-Public Use
  Company Number: USA041182936

PATIENT
  Age: 51 Year
  Sex: Female

DRUGS (7)
  1. CYMBALTA [Suspect]
     Indication: DEPRESSION
     Dosage: 60 MG DAY
     Dates: start: 20041027
  2. ARTHROTEC [Concomitant]
  3. ATACAND [Concomitant]
  4. GLUCOPHAGE [Concomitant]
  5. GLUCOTROL [Concomitant]
  6. BROMOCRIPTINE [Concomitant]
  7. HORMONE REPLACEMENT THERAPY [Concomitant]

REACTIONS (4)
  - ASTHENIA [None]
  - CRYING [None]
  - HEADACHE [None]
  - NAUSEA [None]
